FAERS Safety Report 7258284-0 (Version None)
Quarter: 2011Q1

REPORT INFORMATION
  Report Type: 
  Country: None (occurrence: None)
  Receive Date: 20110129
  Receipt Date: 20100721
  Transmission Date: 20110831
  Serious: No
  Sender: FDA-Public Use
  Company Number: US-ABBOTT-10P-163-0660375-00

PATIENT
  Sex: Female
  Weight: 66.284 kg

DRUGS (12)
  1. MERCAPTOPURINE [Concomitant]
  2. TOPAMAX [Concomitant]
  3. HYDROCODONE [Concomitant]
  4. ZYRTEC [Concomitant]
  5. NEXIUM [Concomitant]
  6. CYMBALTA [Concomitant]
  7. HUMIRA [Suspect]
     Indication: CROHN'S DISEASE
     Dosage: 1ST LOADING DOSE, ONCE
     Dates: start: 20100501, end: 20100501
  8. VITAMIN B-12 [Concomitant]
     Route: 050
  9. HUMIRA [Suspect]
     Dosage: 2 WEEKS AFTER LOADING DOSE, 2ND LOADING DOSE, ONCE
     Dates: start: 20100501, end: 20100501
  10. ENTOCORT EC [Concomitant]
  11. PHENERGAN [Concomitant]
  12. HUMIRA [Suspect]
     Route: 058
     Dates: start: 20100601

REACTIONS (4)
  - MALAISE [None]
  - PRODUCT QUALITY ISSUE [None]
  - BLOOD IRON DECREASED [None]
  - DRUG INEFFECTIVE [None]
